FAERS Safety Report 7060867-8 (Version None)
Quarter: 2010Q4

REPORT INFORMATION
  Report Type: 
  Country: None (occurrence: None)
  Receive Date: 20101025
  Receipt Date: 20101013
  Transmission Date: 20110411
  Serious: Yes (Other)
  Sender: FDA-Public Use
  Company Number: US-GILEAD-2010-0032549

PATIENT
  Age: 37 Year
  Sex: Male

DRUGS (14)
  1. VIREAD [Suspect]
     Indication: HIV INFECTION
     Dates: start: 20030101, end: 20080501
  2. LOPINAVIR [Concomitant]
     Indication: HIV INFECTION
     Dates: start: 20030101, end: 20080501
  3. ZIDOVUDINE [Concomitant]
     Indication: HIV INFECTION
     Dates: start: 20030101, end: 20070301
  4. ZIDOVUDINE [Concomitant]
     Dates: start: 20080501
  5. COMBIVIR [Concomitant]
     Indication: HIV INFECTION
     Dates: start: 20080501
  6. RALTEGRAVIR [Concomitant]
     Indication: HIV INFECTION
     Dates: start: 20080501
  7. RITONAVIR [Concomitant]
     Indication: HIV INFECTION
     Dates: start: 20080501
  8. ATAZANAVIR [Concomitant]
     Indication: HIV INFECTION
     Dates: start: 20080501
  9. MS CONTIN [Concomitant]
     Indication: PAIN
  10. OXYCODONE [Concomitant]
     Indication: PAIN
  11. BUPROPION [Concomitant]
  12. ATORVASTATIN [Concomitant]
  13. COLCHICINE [Concomitant]
  14. ALLOPURINOL [Concomitant]

REACTIONS (3)
  - BONE PAIN [None]
  - FANCONI SYNDROME ACQUIRED [None]
  - OSTEOPOROSIS [None]
